FAERS Safety Report 18560121 (Version 1)
Quarter: 2020Q4

REPORT INFORMATION
  Report Type: Spontaneous
  Country: CO (occurrence: CO)
  Receive Date: 20201130
  Receipt Date: 20201130
  Transmission Date: 20210114
  Serious: Yes (Other)
  Sender: FDA-Public Use
  Company Number: CO-AMGEN-COLSP2020191918

PATIENT
  Age: 55 Year

DRUGS (1)
  1. AMGEVITA [Suspect]
     Active Substance: ADALIMUMAB
     Indication: SPONDYLITIS
     Dosage: UNK
     Route: 065
     Dates: start: 201911, end: 202005

REACTIONS (2)
  - Invasive ductal breast carcinoma [Unknown]
  - Hormone receptor positive breast cancer [Unknown]

NARRATIVE: CASE EVENT DATE: 202007
